FAERS Safety Report 19620901 (Version 1)
Quarter: 2021Q3

REPORT INFORMATION
  Report Type: Spontaneous
  Country: US (occurrence: US)
  Receive Date: 20210727
  Receipt Date: 20210727
  Transmission Date: 20211014
  Serious: Yes (Other)
  Sender: FDA-Public Use
  Company Number: None

PATIENT
  Age: 63 Year
  Sex: Female
  Weight: 95.71 kg

DRUGS (2)
  1. OGIVRI [Suspect]
     Active Substance: TRASTUZUMAB-DKST
     Indication: BREAST CANCER STAGE IV
     Route: 042
     Dates: start: 20200819, end: 20200916
  2. KANJINTI [Suspect]
     Active Substance: TRASTUZUMAB-ANNS
     Indication: BREAST CANCER STAGE IV
     Route: 042
     Dates: start: 20200120, end: 20200316

REACTIONS (4)
  - Mobility decreased [None]
  - Bone pain [None]
  - Product substitution issue [None]
  - Quality of life decreased [None]
